FAERS Safety Report 6066439-6 (Version None)
Quarter: 2009Q1

REPORT INFORMATION
  Report Type: 
  Country: None (occurrence: None)
  Receive Date: 20090205
  Receipt Date: 20090128
  Transmission Date: 20090719
  Serious: Yes (Hospitalization)
  Sender: FDA-Public Use
  Company Number: US-AVENTIS-200910775US

PATIENT
  Sex: Male

DRUGS (9)
  1. LANTUS [Suspect]
     Route: 058
     Dates: start: 20020101
  2. METFORMIN [Concomitant]
     Dosage: DOSE: UNK
  3. CARDIOVASCULAR SYSTEM DRUGS [Concomitant]
     Dosage: DOSE: UNK
  4. COREG [Concomitant]
     Dosage: DOSE: UNK
  5. NORTRIPTYLINE HCL [Concomitant]
     Dosage: DOSE: UNK
  6. ASPIRIN [Concomitant]
  7. MULTI-VITAMINS [Concomitant]
     Dosage: DOSE: UNK
  8. NOVOLOG [Concomitant]
     Dosage: DOSE: SLIDING SCALE
  9. HYZAAR [Concomitant]
     Dosage: DOSE: UNK

REACTIONS (3)
  - AMPUTATION REVISION [None]
  - BLOOD GLUCOSE INCREASED [None]
  - EYE DISORDER [None]
